FAERS Safety Report 22074030 (Version 1)
Quarter: 2023Q1

REPORT INFORMATION
  Report Type: Spontaneous
  Country: US (occurrence: None)
  Receive Date: 20230307
  Receipt Date: 20230307
  Transmission Date: 20230417
  Serious: Yes (Hospitalization)
  Sender: FDA-Public Use
  Company Number: None

PATIENT
  Age: 81 Year
  Sex: Male
  Weight: 68 kg

DRUGS (1)
  1. PROPOFOL [Suspect]
     Active Substance: PROPOFOL
     Dates: start: 20230227

REACTIONS (3)
  - Atrial fibrillation [None]
  - Gastrointestinal procedural complication [None]
  - Procedure aborted [None]

NARRATIVE: CASE EVENT DATE: 20230227
